FAERS Safety Report 14176455 (Version 1)
Quarter: 2017Q4

REPORT INFORMATION
  Report Type: Report from Study
  Country: CN (occurrence: CN)
  Receive Date: 20171109
  Receipt Date: 20171109
  Transmission Date: 20180321
  Serious: Yes (Other)
  Sender: FDA-Public Use
  Company Number: CN-ROCHE-2019580

PATIENT

DRUGS (3)
  1. WARFARIN [Concomitant]
     Active Substance: WARFARIN
     Indication: CEREBRAL INFARCTION
  2. ALTEPLASE. [Suspect]
     Active Substance: ALTEPLASE
     Indication: CEREBRAL INFARCTION
     Route: 042
  3. LOW MOLECULAR HEPARIN [Concomitant]
     Active Substance: UNSPECIFIED INGREDIENT
     Indication: CEREBRAL INFARCTION

REACTIONS (1)
  - Haemorrhage intracranial [Unknown]
